FAERS Safety Report 15931625 (Version 1)
Quarter: 2019Q1

REPORT INFORMATION
  Report Type: Spontaneous
  Country: JP (occurrence: JP)
  Receive Date: 20190207
  Receipt Date: 20190207
  Transmission Date: 20190417
  Serious: Yes (Death)
  Sender: FDA-Public Use
  Company Number: JP-ROCHE-2260011

PATIENT
  Sex: Male

DRUGS (1)
  1. GAZYVA [Suspect]
     Active Substance: OBINUTUZUMAB
     Indication: NEOPLASM MALIGNANT
     Dosage: DOSE INTERVAL UNCERTAINTY
     Route: 041
     Dates: start: 20181107, end: 20181121

REACTIONS (1)
  - Marasmus [Fatal]
